FAERS Safety Report 6137083-7 (Version None)
Quarter: 2009Q1

REPORT INFORMATION
  Report Type: 
  Country: None (occurrence: None)
  Receive Date: 20090330
  Receipt Date: 20090316
  Transmission Date: 20090719
  Serious: Yes (Life-Threatening, Hospitalization)
  Sender: FDA-Public Use
  Company Number: FR-ROCHE-622236

PATIENT
  Age: 30 Year
  Sex: Male

DRUGS (4)
  1. TAMIFLU [Suspect]
     Route: 065
     Dates: start: 20090114, end: 20090116
  2. PREDNISOLONE [Concomitant]
  3. AUGMENTIN '125' [Concomitant]
  4. DETURGYLONE [Concomitant]

REACTIONS (1)
  - STATUS EPILEPTICUS [None]
